FAERS Safety Report 19957701 (Version 12)
Quarter: 2022Q3

REPORT INFORMATION
  Report Type: Report from Study
  Country: CN (occurrence: CN)
  Receive Date: 20211014
  Receipt Date: 20220720
  Transmission Date: 20221027
  Serious: Yes (Hospitalization, Other)
  Sender: FDA-Public Use
  Company Number: CN-BRISTOL-MYERS SQUIBB COMPANY-BMS-2021-104327

PATIENT
  Age: 68 Year
  Sex: Male
  Weight: 77 kg

DRUGS (24)
  1. IPILIMUMAB [Suspect]
     Active Substance: IPILIMUMAB
     Indication: Hepatocellular carcinoma
     Dosage: MG
     Route: 065
     Dates: start: 20210914, end: 20210914
  2. IPILIMUMAB [Suspect]
     Active Substance: IPILIMUMAB
  3. NIVOLUMAB [Suspect]
     Active Substance: NIVOLUMAB
     Indication: Hepatocellular carcinoma
     Dosage: MG
     Route: 065
     Dates: start: 20210914, end: 20210914
  4. NIVOLUMAB [Suspect]
     Active Substance: NIVOLUMAB
  5. ADEFOVIR DIPIVOXIL [Concomitant]
     Active Substance: ADEFOVIR DIPIVOXIL
     Indication: Product used for unknown indication
     Dosage: 10 MILLIGRAM
     Route: 048
     Dates: start: 202001, end: 20211013
  6. NIFEDIPINE SUSTAINED RELEASE TABLETS (I) [Concomitant]
     Indication: Product used for unknown indication
     Dosage: 10 MILLIGRAM
     Route: 048
     Dates: start: 2006
  7. PHENBENZAMINE [Concomitant]
     Indication: Product used for unknown indication
     Dosage: 10 MILLIGRAM
     Route: 048
     Dates: start: 2019
  8. ASPIRIN [Concomitant]
     Active Substance: ASPIRIN
     Indication: Product used for unknown indication
     Dosage: 100 MILLIGRAM
     Route: 048
     Dates: start: 20210901
  9. ASPIRIN [Concomitant]
     Active Substance: ASPIRIN
     Route: 048
     Dates: start: 2019, end: 20210823
  10. INDAPAMIDE [Concomitant]
     Active Substance: INDAPAMIDE
     Indication: Product used for unknown indication
     Dosage: 2.5 MILLIGRAM
     Route: 048
     Dates: start: 2006, end: 20210907
  11. PREDNISONE ACETATE [Concomitant]
     Active Substance: PREDNISONE ACETATE
     Indication: Product used for unknown indication
     Route: 048
     Dates: start: 20211011, end: 20211101
  12. PREDNISONE ACETATE [Concomitant]
     Active Substance: PREDNISONE ACETATE
     Route: 048
     Dates: start: 20211102, end: 20211108
  13. PREDNISONE ACETATE [Concomitant]
     Active Substance: PREDNISONE ACETATE
     Route: 048
     Dates: start: 20211109, end: 20211115
  14. PREDNISONE ACETATE [Concomitant]
     Active Substance: PREDNISONE ACETATE
     Route: 048
     Dates: start: 20211116, end: 20211122
  15. TENOFOVIR DISOPROXIL FUMARATE [Concomitant]
     Active Substance: TENOFOVIR DISOPROXIL FUMARATE
     Indication: Product used for unknown indication
     Route: 048
     Dates: start: 20211014
  16. POLYENE PHOSPHATIDYLCHOLINE CAPSULES [Concomitant]
     Indication: Product used for unknown indication
     Route: 048
     Dates: start: 20211015, end: 20211028
  17. POLYENE PHOSPHATIDYLCHOLINE CAPSULES [Concomitant]
     Route: 048
     Dates: start: 20211108, end: 20211217
  18. DIAMMONIUM GLYCYRRHIZINATE ENTERIC-COATED CAPSULES [Concomitant]
     Indication: Product used for unknown indication
     Route: 048
     Dates: start: 20211015, end: 20211028
  19. DIAMMONIUM GLYCYRRHIZINATE ENTERIC-COATED CAPSULES [Concomitant]
     Route: 048
     Dates: start: 20211108, end: 20211217
  20. MAGNESIUM ISOGLYCYRRHIZINATE INJECTION [Concomitant]
     Indication: Product used for unknown indication
     Route: 042
     Dates: start: 20211029, end: 20211107
  21. MAGNESIUM ISOGLYCYRRHIZINATE INJECTION [Concomitant]
     Route: 042
     Dates: start: 20211008, end: 20211014
  22. POLYENE PHOSPHATIDYLCHOLINE INJECTION [Concomitant]
     Indication: Product used for unknown indication
     Route: 042
     Dates: start: 20211029, end: 20211107
  23. POLYENE PHOSPHATIDYLCHOLINE INJECTION [Concomitant]
     Route: 042
     Dates: start: 20211008, end: 20211014
  24. AMINO ACIDS, SOURCE UNSPECIFIED [Concomitant]
     Active Substance: AMINO ACIDS, SOURCE UNSPECIFIED
     Indication: Product used for unknown indication
     Dosage: DOSE: 250
     Route: 042
     Dates: start: 20211008, end: 20211008

REACTIONS (1)
  - Drug-induced liver injury [Recovering/Resolving]

NARRATIVE: CASE EVENT DATE: 20211007
